FAERS Safety Report 8447431-0 (Version None)
Quarter: 2012Q2

REPORT INFORMATION
  Report Type: 
  Country: None (occurrence: None)
  Receive Date: 20120619
  Receipt Date: 20120605
  Transmission Date: 20120825
  Serious: Yes (Other)
  Sender: FDA-Public Use
  Company Number: NZ-CELGENEUS-118-C5013-12060394

PATIENT
  Sex: Male
  Weight: 64.8 kg

DRUGS (1)
  1. CHLORAMBUCIL [Suspect]
     Dosage: 48 MILLIGRAM
     Route: 065
     Dates: start: 20120319, end: 20120416

REACTIONS (1)
  - SKIN CANCER [None]
